FAERS Safety Report 10552359 (Version 1)
Quarter: 2014Q4

REPORT INFORMATION
  Report Type: Spontaneous
  Country: US (occurrence: US)
  Receive Date: 20141029
  Receipt Date: 20141029
  Transmission Date: 20150529
  Serious: Yes (Other)
  Sender: FDA-Public Use
  Company Number: US-ASTRAZENECA-2014SE80479

PATIENT
  Sex: Male

DRUGS (1)
  1. NEXIUM [Suspect]
     Active Substance: ESOMEPRAZOLE MAGNESIUM
     Indication: GASTROINTESTINAL EROSION
     Route: 048

REACTIONS (6)
  - Speech disorder [Unknown]
  - Dysphagia [Unknown]
  - Intentional product use issue [Unknown]
  - Tongue neoplasm malignant stage unspecified [Unknown]
  - Impaired work ability [Unknown]
  - Gastric disorder [Unknown]
